FAERS Safety Report 12041488 (Version 1)
Quarter: 2016Q1

REPORT INFORMATION
  Report Type: Report from Study
  Country: US (occurrence: US)
  Receive Date: 20160208
  Receipt Date: 20160208
  Transmission Date: 20160526
  Serious: Yes (Hospitalization)
  Sender: FDA-Public Use
  Company Number: US-ABBVIE-15P-163-1328847-00

PATIENT
  Age: 46 Year
  Sex: Male
  Weight: 62 kg

DRUGS (5)
  1. APRISO [Concomitant]
     Active Substance: MESALAMINE
     Indication: COLITIS ULCERATIVE
     Route: 048
     Dates: start: 20140226
  2. HUMIRA [Suspect]
     Active Substance: ADALIMUMAB
     Indication: COLITIS ULCERATIVE
     Dosage: BASELINE
     Route: 058
     Dates: start: 20140319, end: 20140319
  3. HUMIRA [Suspect]
     Active Substance: ADALIMUMAB
     Route: 058
     Dates: start: 20140520, end: 20140610
  4. PROTOCORT [Concomitant]
     Indication: COLITIS ULCERATIVE
     Route: 054
     Dates: start: 20140210
  5. HYDROCODONE [Concomitant]
     Active Substance: HYDROCODONE
     Indication: COLITIS ULCERATIVE
     Route: 048
     Dates: start: 20140210

REACTIONS (1)
  - Colitis ulcerative [Recovered/Resolved]

NARRATIVE: CASE EVENT DATE: 20140610
